FAERS Safety Report 8583606-8 (Version None)
Quarter: 2012Q3

REPORT INFORMATION
  Report Type: 
  Country: None (occurrence: None)
  Receive Date: 20120809
  Receipt Date: 20120704
  Transmission Date: 20120928
  Serious: Yes (Other)
  Sender: FDA-Public Use
  Company Number: JP-009507513-2012SP034169

PATIENT

DRUGS (9)
  1. REBETOL [Suspect]
     Dosage: 200 MG, QD
     Route: 048
     Dates: start: 20120523
  2. ALLOPURINOL [Concomitant]
     Dosage: 3 DF, QD
  3. REBETOL [Suspect]
     Indication: HEPATITIS C
     Dosage: 600 MG, QD
     Route: 048
     Dates: start: 20120502, end: 20120522
  4. PERPHENAZINE [Concomitant]
     Dosage: UNK
     Route: 048
  5. LEXOTAN [Concomitant]
     Dosage: UNK
     Route: 048
  6. PEGINTERFERON ALFA-2B [Suspect]
     Indication: HEPATITIS C
     Dosage: 1.5 MICROGRAM PER KILOGRAM, QW
     Route: 058
     Dates: start: 20120502, end: 20120607
  7. AMOBAN [Concomitant]
     Dosage: UNK
     Route: 048
  8. TELAPREVIR [Suspect]
     Indication: HEPATITIS C
     Dosage: 2250 MG, QD
     Route: 048
     Dates: start: 20120502, end: 20120503
  9. TELAPREVIR [Suspect]
     Dosage: 1500 MG, QD
     Route: 048
     Dates: start: 20120504, end: 20120601

REACTIONS (2)
  - BLISTER [None]
  - ERYTHEMA [None]
